FAERS Safety Report 4505608-0 (Version None)
Quarter: 2004Q4

REPORT INFORMATION
  Report Type: 
  Country: None (occurrence: None)
  Receive Date: 20041119
  Receipt Date: 20041109
  Transmission Date: 20050328
  Serious: Yes (Other)
  Sender: FDA-Public Use
  Company Number: PHBS2004SE15056

PATIENT
  Age: 73 Year
  Sex: Female

DRUGS (6)
  1. SANDOSTATIN LAR [Suspect]
     Indication: ACROMEGALY
     Dosage: 30 MG EVERY 28TH DAY
     Dates: start: 20020801, end: 20021101
  2. SANDOSTATIN LAR [Suspect]
     Dosage: 30 MG EVERY 28TH DAY
     Dates: start: 20031001
  3. LEVAXIN [Concomitant]
     Dosage: 0.1 MG/DAY
     Dates: start: 20020301
  4. PREDNISOLONE [Concomitant]
     Dosage: 2.5 MG EVERY OTHER DAY
  5. ASPIRIN [Concomitant]
     Dosage: 75 MG/DAY
     Dates: start: 20040801
  6. PANCREASE [Concomitant]
     Dosage: UNK, PRN

REACTIONS (1)
  - OPTIC NEUROPATHY [None]
